FAERS Safety Report 13087780 (Version 1)
Quarter: 2017Q1

REPORT INFORMATION
  Report Type: Spontaneous
  Country: US (occurrence: US)
  Receive Date: 20170105
  Receipt Date: 20170105
  Transmission Date: 20170428
  Serious: Yes (Hospitalization)
  Sender: FDA-Public Use
  Company Number: US-SA-2017SA000263

PATIENT
  Age: 60 Year
  Sex: Female

DRUGS (7)
  1. TOUJEO [Suspect]
     Active Substance: INSULIN GLARGINE
     Indication: DIABETES MELLITUS
     Dosage: DOSE:26 UNIT(S)
     Route: 065
     Dates: start: 201501
  2. SOLOSTAR [Concomitant]
     Active Substance: DEVICE
     Dates: start: 201501
  3. CARVEDILOL. [Concomitant]
     Active Substance: CARVEDILOL
  4. NOVOLOG [Concomitant]
     Active Substance: INSULIN ASPART
  5. PRAVASTATIN. [Concomitant]
     Active Substance: PRAVASTATIN
  6. LISINOPRIL. [Concomitant]
     Active Substance: LISINOPRIL
  7. LASIX [Concomitant]
     Active Substance: FUROSEMIDE

REACTIONS (12)
  - Nausea [Unknown]
  - Hypotension [Not Recovered/Not Resolved]
  - Blood glucose increased [Unknown]
  - Loss of consciousness [Unknown]
  - Gait disturbance [Unknown]
  - Hyperhidrosis [Unknown]
  - Paraesthesia [Not Recovered/Not Resolved]
  - Weight increased [Unknown]
  - Myocardial infarction [Unknown]
  - Fatigue [Unknown]
  - Heart rate increased [Not Recovered/Not Resolved]
  - Hypoaesthesia [Unknown]

NARRATIVE: CASE EVENT DATE: 2015
